FAERS Safety Report 4851420-2 (Version None)
Quarter: 2005Q4

REPORT INFORMATION
  Report Type: 
  Country: None (occurrence: None)
  Receive Date: 20051208
  Receipt Date: 20051206
  Transmission Date: 20060501
  Serious: Yes (Hospitalization)
  Sender: FDA-Public Use
  Company Number: THQ2005A01015

PATIENT
  Sex: Male

DRUGS (1)
  1. LEUPROLIDE ACETATE [Suspect]
     Indication: PROSTATE CANCER

REACTIONS (7)
  - DYSPHONIA [None]
  - GRANULOMA [None]
  - LEUKOPLAKIA [None]
  - LEUKOPLAKIA ORAL [None]
  - THROAT IRRITATION [None]
  - VOCAL CORD DISORDER [None]
  - VOCAL CORD POLYP [None]
